FAERS Safety Report 11044163 (Version 1)
Quarter: 2015Q2

REPORT INFORMATION
  Report Type: Spontaneous
  Country: US (occurrence: None)
  Receive Date: 20150416
  Receipt Date: 20150416
  Transmission Date: 20150821
  Serious: Yes (Hospitalization)
  Sender: FDA-Public Use
  Company Number: None

PATIENT
  Age: 38 Year
  Sex: Female
  Weight: 136 kg

DRUGS (2)
  1. IFOSFAMIDE. [Suspect]
     Active Substance: IFOSFAMIDE
     Indication: ENDOMETRIAL CANCER
     Route: 042
     Dates: start: 20150216, end: 20150216
  2. IFOSFAMIDE. [Suspect]
     Active Substance: IFOSFAMIDE
     Route: 042
     Dates: start: 20150216, end: 20150216

REACTIONS (5)
  - Neurotoxicity [None]
  - Disorientation [None]
  - Feeling abnormal [None]
  - Memory impairment [None]
  - Balance disorder [None]

NARRATIVE: CASE EVENT DATE: 20150216
